FAERS Safety Report 8928787 (Version 2)
Quarter: 2014Q2

REPORT INFORMATION
  Report Type: Spontaneous
  Country: US (occurrence: US)
  Receive Date: 20121128
  Receipt Date: 20131024
  Transmission Date: 20141212
  Serious: Yes (Other)
  Sender: FDA-Public Use
  Company Number: US-PFIZER INC-2012292494

PATIENT
  Age: 57 Year
  Sex: Female

DRUGS (2)
  1. ENBREL [Suspect]
     Indication: RHEUMATOID ARTHRITIS
     Dosage: 50 MG, QWK
     Dates: start: 20080915
  2. METHOTREXATE SODIUM [Suspect]
     Dosage: 12.5 MG, QWK
     Dates: start: 2009

REACTIONS (4)
  - Infection [Not Recovered/Not Resolved]
  - Arthropod bite [Not Recovered/Not Resolved]
  - Erythema [Not Recovered/Not Resolved]
  - Hair texture abnormal [Not Recovered/Not Resolved]
